FAERS Safety Report 4293266-2 (Version None)
Quarter: 2004Q1

REPORT INFORMATION
  Report Type: 
  Country: None (occurrence: None)
  Receive Date: 20040126
  Receipt Date: 20031022
  Transmission Date: 20041129
  Serious: No
  Sender: FDA-Public Use
  Company Number: USA031050644

PATIENT
  Age: 90 Year
  Sex: Female

DRUGS (1)
  1. FORTEO [Suspect]
     Indication: OSTEOPOROSIS
     Dosage: 20 UG/DAY
     Dates: start: 20030301, end: 20031020

REACTIONS (5)
  - AMNESIA [None]
  - ANXIETY [None]
  - ASTHENIA [None]
  - FATIGUE [None]
  - METABOLIC DISORDER [None]
